FAERS Safety Report 13026904 (Version 4)
Quarter: 2017Q4

REPORT INFORMATION
  Report Type: Spontaneous
  Country: US (occurrence: US)
  Receive Date: 20161214
  Receipt Date: 20171110
  Transmission Date: 20180320
  Serious: Yes (Hospitalization, Other)
  Sender: FDA-Public Use
  Company Number: US-CORCEPT THERAPEUTICS INC.-US-2016CRT000764

PATIENT

DRUGS (6)
  1. LASIX [Suspect]
     Active Substance: FUROSEMIDE
     Indication: FLUID RETENTION
     Dosage: UNK (STARTED AFTER HOSPITALIZATION IN LATE NOV-2016)
     Dates: start: 2016
  2. KORLYM [Suspect]
     Active Substance: MIFEPRISTONE
     Indication: HYPERGLYCAEMIA
  3. KORLYM [Suspect]
     Active Substance: MIFEPRISTONE
     Indication: TYPE 2 DIABETES MELLITUS
     Dosage: 600 MG, QD
     Route: 048
     Dates: start: 20161201, end: 20161228
  4. KORLYM [Suspect]
     Active Substance: MIFEPRISTONE
     Indication: OBESITY
  5. KORLYM [Suspect]
     Active Substance: MIFEPRISTONE
     Indication: CUSHING^S SYNDROME
     Dosage: 300 MG, QD
     Route: 048
     Dates: start: 20161118, end: 20161130
  6. KORLYM [Suspect]
     Active Substance: MIFEPRISTONE
     Indication: ESSENTIAL HYPERTENSION

REACTIONS (9)
  - Weight increased [Unknown]
  - Acute kidney injury [Recovering/Resolving]
  - Pulmonary mass [Unknown]
  - Oedema peripheral [Not Recovered/Not Resolved]
  - Hyperkalaemia [Recovering/Resolving]
  - Left ventricular failure [Not Recovered/Not Resolved]
  - Fluid retention [Not Recovered/Not Resolved]
  - Dyspnoea [Not Recovered/Not Resolved]
  - Dehydration [Not Recovered/Not Resolved]

NARRATIVE: CASE EVENT DATE: 2016
